FAERS Safety Report 26099955 (Version 1)
Quarter: 2025Q4

REPORT INFORMATION
  Report Type: Spontaneous
  Country: EU (occurrence: EU)
  Receive Date: 20251128
  Receipt Date: 20251128
  Transmission Date: 20260117
  Serious: Yes (Other)
  Sender: JOHNSON AND JOHNSON
  Company Number: EU-JNJFOC-20251169563

PATIENT
  Age: 61 Year
  Sex: Male

DRUGS (1)
  1. SYMTUZA [Suspect]
     Active Substance: COBICISTAT\DARUNAVIR\EMTRICITABINE\TENOFOVIR ALAFENAMIDE
     Indication: HIV infection
     Route: 048
     Dates: start: 20171201, end: 20250801

REACTIONS (4)
  - Prostate cancer [Unknown]
  - Haemangioma of liver [Unknown]
  - Benign prostatic hyperplasia [Unknown]
  - Fatigue [Unknown]
